FAERS Safety Report 10925232 (Version 1)
Quarter: 2015Q1

REPORT INFORMATION
  Report Type: Spontaneous
  Country: HR (occurrence: HR)
  Receive Date: 20150318
  Receipt Date: 20150318
  Transmission Date: 20150721
  Serious: Yes (Hospitalization)
  Sender: FDA-Public Use
  Company Number: HR-NOVOPROD-418747

PATIENT
  Age: 7 Year
  Sex: Male
  Weight: 28.5 kg

DRUGS (3)
  1. NOVOSEVEN [Suspect]
     Active Substance: COAGULATION FACTOR VIIA RECOMBINANT HUMAN
     Dosage: 420 ?G/KG, QD (4 TIMES A DAY FOR ONE DAY)
     Route: 042
  2. NOVOSEVEN [Suspect]
     Active Substance: COAGULATION FACTOR VIIA RECOMBINANT HUMAN
     Dosage: 285 ?G/KG, QD (FOR TWO DAYS)
     Route: 042
  3. NOVOSEVEN [Suspect]
     Active Substance: COAGULATION FACTOR VIIA RECOMBINANT HUMAN
     Indication: HAEMOPHILIA B WITH ANTI FACTOR IX
     Dosage: 285 ?G/KG  IN 10-20 MINUTE FOR 2 DAYS
     Route: 042

REACTIONS (1)
  - Renal vein embolism [Recovered/Resolved]
